FAERS Safety Report 8528531-3 (Version None)
Quarter: 2012Q3

REPORT INFORMATION
  Report Type: 
  Country: None (occurrence: None)
  Receive Date: 20120723
  Receipt Date: 20120718
  Transmission Date: 20120928
  Serious: Yes (Life-Threatening)
  Sender: FDA-Public Use
  Company Number: US-009507513-1206USA04303

PATIENT

DRUGS (1)
  1. JANUMET XR [Suspect]
     Route: 048

REACTIONS (1)
  - ANGIOEDEMA [None]
